FAERS Safety Report 13073789 (Version 1)
Quarter: 2016Q4

REPORT INFORMATION
  Report Type: Spontaneous
  Country: US (occurrence: US)
  Receive Date: 20161229
  Receipt Date: 20161229
  Transmission Date: 20170207
  Serious: Yes (Other)
  Sender: FDA-Public Use
  Company Number: US-PFIZER INC-2016602661

PATIENT
  Sex: Male

DRUGS (1)
  1. XANAX [Suspect]
     Active Substance: ALPRAZOLAM
     Dosage: 3 MG, DAILY

REACTIONS (8)
  - Coma [Unknown]
  - Rapid eye movements sleep abnormal [Unknown]
  - Bedridden [Unknown]
  - Feeling abnormal [Unknown]
  - Therapeutic response unexpected [Unknown]
  - Hypertension [Unknown]
  - Impaired driving ability [Unknown]
  - Intentional product misuse [Unknown]
